FAERS Safety Report 9918312 (Version 1)
Quarter: 2014Q1

REPORT INFORMATION
  Report Type: Report from Study
  Country: JP (occurrence: JP)
  Receive Date: 20140224
  Receipt Date: 20140224
  Transmission Date: 20141002
  Serious: Yes (Hospitalization, Other)
  Sender: FDA-Public Use
  Company Number: JP-ROCHE-1350556

PATIENT
  Age: 69 Year
  Sex: Male

DRUGS (6)
  1. BEVACIZUMAB [Suspect]
     Indication: COLON CANCER
     Route: 065
  2. OXALIPLATIN [Suspect]
     Indication: COLON CANCER
     Route: 065
  3. LEUCOVORIN [Suspect]
     Indication: COLON CANCER
     Route: 065
  4. FLUOROURACIL [Suspect]
     Indication: COLON CANCER
     Dosage: BOLUS
     Route: 065
  5. FLUOROURACIL [Suspect]
     Dosage: SUBSEQUENT 46-H INFUSION
     Route: 065
  6. RABEPRAZOLE [Concomitant]

REACTIONS (2)
  - Interstitial lung disease [Recovering/Resolving]
  - Haematotoxicity [Unknown]
